FAERS Safety Report 4532622-1 (Version None)
Quarter: 2004Q4

REPORT INFORMATION
  Report Type: 
  Country: None (occurrence: None)
  Receive Date: 20041220
  Receipt Date: 20041220
  Transmission Date: 20050328
  Serious: Yes (Hospitalization)
  Sender: FDA-Public Use
  Company Number: None

PATIENT
  Age: 81 Year
  Sex: Female
  Weight: 65 kg

DRUGS (7)
  1. ERBITUX [Suspect]
     Indication: ADENOCARCINOMA
     Dates: start: 20041109
  2. DIGOXIN [Concomitant]
  3. ATENOLOL [Concomitant]
  4. WARFARIN SODIUM [Concomitant]
  5. GABAPENTIN [Concomitant]
  6. MEGACE [Concomitant]
  7. FLUOROURACIL [Concomitant]

REACTIONS (2)
  - GRAND MAL CONVULSION [None]
  - HYPOTENSION [None]
